FAERS Safety Report 12670402 (Version 3)
Quarter: 2017Q3

REPORT INFORMATION
  Report Type: Report from Study
  Country: None (occurrence: DE)
  Receive Date: 20160822
  Receipt Date: 20170901
  Transmission Date: 20171127
  Serious: Yes (Hospitalization)
  Sender: FDA-Public Use
  Company Number: DE-ABBVIE-16K-062-1702490-00

PATIENT
  Age: 55 Year
  Sex: Male

DRUGS (2)
  1. HUMIRA [Suspect]
     Active Substance: ADALIMUMAB
     Indication: PSORIASIS
     Route: 058
     Dates: start: 20120727
  2. PANTOPRAZOL [Concomitant]
     Active Substance: PANTOPRAZOLE SODIUM
     Indication: PRODUCT USED FOR UNKNOWN INDICATION

REACTIONS (7)
  - Facial paralysis [Recovered/Resolved]
  - Facial paralysis [Unknown]
  - Dysarthria [Unknown]
  - Nasopharyngitis [Recovered/Resolved]
  - Lagophthalmos [Unknown]
  - Paraesthesia oral [Unknown]
  - Headache [Unknown]

NARRATIVE: CASE EVENT DATE: 20140318
